FAERS Safety Report 9568856 (Version 2)
Quarter: 2013Q3

REPORT INFORMATION
  Report Type: Spontaneous
  Country: US (occurrence: US)
  Receive Date: 20130930
  Receipt Date: 20130930
  Transmission Date: 20140515
  Serious: No
  Sender: FDA-Public Use
  Company Number: US-AMGEN-USASP2013059720

PATIENT
  Age: 52 Year
  Sex: Male

DRUGS (5)
  1. ENBREL [Suspect]
     Indication: PRODUCT USED FOR UNKNOWN INDICATION
     Dosage: 50 MG, Q2WK
     Route: 058
  2. TYLENOL W/CODEINE NO. 3 [Concomitant]
     Dosage: UNK
  3. METFORMIN [Concomitant]
     Dosage: 500 MG, UNK
  4. LOSARTAN POTASSIUM [Concomitant]
     Dosage: 50 MG, UNK
  5. POTASSIUM [Concomitant]
     Dosage: 75 MG, UNK

REACTIONS (2)
  - Fatigue [Unknown]
  - Psoriasis [Unknown]
